FAERS Safety Report 23303641 (Version 1)
Quarter: 2023Q4

REPORT INFORMATION
  Report Type: Spontaneous
  Country: CA (occurrence: CA)
  Receive Date: 20231215
  Receipt Date: 20231215
  Transmission Date: 20240109
  Serious: Yes (Life-Threatening, Hospitalization, Other)
  Sender: FDA-Public Use
  Company Number: CA-009507513-2312CAN005769

PATIENT
  Age: 67 Year
  Sex: Male
  Weight: 63 kg

DRUGS (5)
  1. KEYTRUDA [Suspect]
     Active Substance: PEMBROLIZUMAB
     Indication: Non-small cell lung cancer stage IV
     Dosage: DURATION 100 DAYS
     Route: 042
  2. ATORVASTATIN [Concomitant]
     Active Substance: ATORVASTATIN
  3. LEVETIRACETAM [Concomitant]
     Active Substance: LEVETIRACETAM
  4. MORPHINE [Concomitant]
     Active Substance: MORPHINE
  5. PROCHLORPERAZINE [Concomitant]
     Active Substance: PROCHLORPERAZINE

REACTIONS (3)
  - Dyspnoea [Recovering/Resolving]
  - Lymphadenopathy [Recovering/Resolving]
  - Pneumonia [Recovering/Resolving]
